FAERS Safety Report 13151319 (Version 5)
Quarter: 2017Q1

REPORT INFORMATION
  Report Type: Spontaneous
  Country: US (occurrence: US)
  Receive Date: 20170125
  Receipt Date: 20170329
  Transmission Date: 20170428
  Serious: Yes (Other)
  Sender: FDA-Public Use
  Company Number: US-AMGEN-USASP2017009382

PATIENT
  Age: 64 Year
  Sex: Female
  Weight: 69.94 kg

DRUGS (4)
  1. ATIVAN [Concomitant]
     Active Substance: LORAZEPAM
     Indication: NAUSEA
     Dosage: 1 DF, Q6H (AS NEEDED)
     Route: 048
     Dates: start: 20170120
  2. FLAGYL [Concomitant]
     Active Substance: METRONIDAZOLE\METRONIDAZOLE HYDROCHLORIDE
     Dosage: 45 G, BID
     Route: 061
     Dates: start: 201701
  3. ATIVAN [Concomitant]
     Active Substance: LORAZEPAM
     Indication: VOMITING
  4. IMLYGIC [Suspect]
     Active Substance: TALIMOGENE LAHERPAREPVEC
     Indication: METASTATIC MALIGNANT MELANOMA
     Dosage: 4 ML, UNK (10^6 PFU/ML)
     Route: 065
     Dates: start: 20170106

REACTIONS (10)
  - Injection site discharge [Unknown]
  - Rash pruritic [Recovering/Resolving]
  - Dermatitis allergic [Recovering/Resolving]
  - Polymerase chain reaction positive [Recovering/Resolving]
  - Pyrexia [Recovered/Resolved]
  - Oncologic complication [Unknown]
  - Oral herpes [Not Recovered/Not Resolved]
  - Chills [Unknown]
  - Urticaria [Recovered/Resolved]
  - Fatigue [Recovering/Resolving]

NARRATIVE: CASE EVENT DATE: 201701
